FAERS Safety Report 10363947 (Version 4)
Quarter: 2014Q3

REPORT INFORMATION
  Report Type: Spontaneous
  Country: DE (occurrence: None)
  Receive Date: 20140801
  Receipt Date: 20140922
  Transmission Date: 20150326
  Serious: Yes (Hospitalization)
  Sender: FDA-Public Use
  Company Number: 2014DE003464

PATIENT
  Age: 76 Year
  Sex: Female
  Weight: 65 kg

DRUGS (18)
  1. CLOPIDOGREL [Concomitant]
     Active Substance: CLOPIDOGREL BISULFATE
  2. FUROSEMID [Concomitant]
     Active Substance: FUROSEMIDE
  3. DICLOFENAC [Concomitant]
     Active Substance: DICLOFENAC
  4. OMEPRAZOL (OMEPRAZOLE) [Concomitant]
  5. IBUPROFEN. [Concomitant]
     Active Substance: IBUPROFEN
  6. RAMIPRIL. [Concomitant]
     Active Substance: RAMIPRIL
  7. HYDROCHLOROTHIAZIDE. [Concomitant]
     Active Substance: HYDROCHLOROTHIAZIDE
  8. SPIRONOLACTONE. [Concomitant]
     Active Substance: SPIRONOLACTONE
  9. PONATINIB [Suspect]
     Active Substance: PONATINIB
     Indication: CHRONIC MYELOID LEUKAEMIA
     Route: 048
     Dates: start: 20130503, end: 20131112
  10. CERTOPARIN SODIUM [Concomitant]
     Active Substance: CERTOPARIN SODIUM
  11. PANTOPRAZOLE [Concomitant]
     Active Substance: PANTOPRAZOLE SODIUM
  12. OCTENISEPT (OCTENIDINE HYDROCHLORIDE, PHENOXYETHANOL) [Concomitant]
  13. BISOPROLOL [Concomitant]
     Active Substance: BISOPROLOL
  14. VOLTAREN (DICLOFENAC EPOLAMINE) [Concomitant]
  15. ASS (ACETYLSALICYLIC ACID) [Concomitant]
  16. KALINOR-BRAUSETABLETTEN (POTASSIUM CARBONATE, POTASSIUM CITRATE) [Concomitant]
  17. ALLOPURINOL. [Concomitant]
     Active Substance: ALLOPURINOL
  18. TORASEMID (TORASEMIDE) [Concomitant]

REACTIONS (2)
  - Peripheral arterial occlusive disease [None]
  - Gangrene [None]

NARRATIVE: CASE EVENT DATE: 20140721
